FAERS Safety Report 10725248 (Version 1)
Quarter: 2015Q1

REPORT INFORMATION
  Report Type: Spontaneous
  Country: FR (occurrence: FR)
  Receive Date: 20150120
  Receipt Date: 20150120
  Transmission Date: 20150721
  Serious: Yes (Hospitalization, Other)
  Sender: FDA-Public Use
  Company Number: FR-BRISTOL-MYERS SQUIBB COMPANY-BMS-2015-001514

PATIENT
  Age: 79 Year
  Sex: Male

DRUGS (9)
  1. RANIPLEX                           /00550801/ [Concomitant]
  2. KARDEGIC [Concomitant]
     Active Substance: ASPIRIN LYSINE
  3. LEXOMIL [Concomitant]
     Active Substance: BROMAZEPAM
  4. REYATAZ [Suspect]
     Active Substance: ATAZANAVIR SULFATE
     Indication: ANTIRETROVIRAL THERAPY
     Dosage: 300 MG, UNK
     Route: 048
     Dates: end: 20141001
  5. FORLAX [Concomitant]
     Active Substance: POLYETHYLENE GLYCOL 4000
  6. STABLON [Concomitant]
     Active Substance: TIANEPTINE
  7. NORVIR [Concomitant]
     Active Substance: RITONAVIR
  8. KIVEXA [Concomitant]
     Active Substance: ABACAVIR SULFATE\LAMIVUDINE
  9. UVEDOSE [Concomitant]
     Active Substance: CHOLECALCIFEROL

REACTIONS (5)
  - Renal colic [Recovered/Resolved]
  - Benign prostatic hyperplasia [None]
  - Hydronephrosis [None]
  - Renal failure [None]
  - Calculus urinary [None]

NARRATIVE: CASE EVENT DATE: 20141001
